FAERS Safety Report 4775063-4 (Version None)
Quarter: 2005Q3

REPORT INFORMATION
  Report Type: 
  Country: None (occurrence: None)
  Receive Date: 20050920
  Receipt Date: 20050913
  Transmission Date: 20060218
  Serious: Yes (Hospitalization)
  Sender: FDA-Public Use
  Company Number: 2003001250

PATIENT
  Age: 62 Year
  Sex: Male
  Weight: 73.0291 kg

DRUGS (4)
  1. LIPITOR [Suspect]
     Indication: HYPERLIPIDAEMIA
     Dosage: 10 MG (1 IN 1 D), ORAL
     Route: 048
     Dates: start: 20020108
  2. PROPAFENONE HCL [Concomitant]
  3. DIGOXIN [Concomitant]
  4. WARFARIN SODIUM [Concomitant]

REACTIONS (3)
  - ATRIAL FLUTTER [None]
  - DYSPNOEA [None]
  - PALPITATIONS [None]
